FAERS Safety Report 6544403-8 (Version None)
Quarter: 2010Q1

REPORT INFORMATION
  Report Type: 
  Country: None (occurrence: None)
  Receive Date: 20100121
  Receipt Date: 20100112
  Transmission Date: 20100710
  Serious: Yes (Hospitalization, Other)
  Sender: FDA-Public Use
  Company Number: US-BIOGENIDEC-2008BI000218

PATIENT
  Age: 61 Year
  Sex: Female
  Weight: 56 kg

DRUGS (3)
  1. AVONEX [Suspect]
     Indication: MULTIPLE SCLEROSIS
     Route: 030
     Dates: start: 19970401, end: 20030101
  2. AVONEX [Suspect]
     Route: 030
     Dates: start: 20030101, end: 20080118
  3. AVONEX [Suspect]
     Route: 030
     Dates: start: 20080324

REACTIONS (22)
  - CARDIAC DISORDER [None]
  - CHEST PAIN [None]
  - CHROMATURIA [None]
  - COCCIDIOIDOMYCOSIS [None]
  - CONCUSSION [None]
  - DECREASED APPETITE [None]
  - DEPRESSION [None]
  - DRUG HYPERSENSITIVITY [None]
  - FALL [None]
  - FEELING ABNORMAL [None]
  - HYPOTENSION [None]
  - INCREASED TENDENCY TO BRUISE [None]
  - INFLUENZA LIKE ILLNESS [None]
  - MENTAL IMPAIRMENT [None]
  - MULTIPLE SCLEROSIS [None]
  - RED BLOOD CELL COUNT DECREASED [None]
  - SKIN ATROPHY [None]
  - SYNCOPE [None]
  - TEMPERATURE INTOLERANCE [None]
  - THROMBOSIS IN DEVICE [None]
  - THYROID DISORDER [None]
  - URINE ODOUR ABNORMAL [None]
